FAERS Safety Report 19440384 (Version 2)
Quarter: 2021Q2

REPORT INFORMATION
  Report Type: Spontaneous
  Country: US (occurrence: US)
  Receive Date: 20210621
  Receipt Date: 20210629
  Transmission Date: 20210717
  Serious: No
  Sender: FDA-Public Use
  Company Number: US-SA-2021SA196465

PATIENT
  Age: 70 Year
  Sex: Female

DRUGS (1)
  1. TOUJEO [Suspect]
     Active Substance: INSULIN GLARGINE
     Indication: TYPE 2 DIABETES MELLITUS
     Dosage: 35 IU, QD
     Route: 065

REACTIONS (4)
  - Product dose omission issue [Unknown]
  - Glycosylated haemoglobin increased [Unknown]
  - Device operational issue [Unknown]
  - Visual impairment [Unknown]

NARRATIVE: CASE EVENT DATE: 2021
